APPROVED DRUG PRODUCT: MIRTAZAPINE
Active Ingredient: MIRTAZAPINE
Strength: 30MG
Dosage Form/Route: TABLET;ORAL
Application: A076312 | Product #002
Applicant: WATSON LABORATORIES INC
Approved: Jun 19, 2003 | RLD: No | RS: No | Type: DISCN